FAERS Safety Report 24565289 (Version 1)
Quarter: 2024Q4

REPORT INFORMATION
  Report Type: Spontaneous
  Country: CH (occurrence: CH)
  Receive Date: 20241030
  Receipt Date: 20241030
  Transmission Date: 20250115
  Serious: Yes (Hospitalization, Other)
  Sender: GLAND PHARMA LTD
  Company Number: CH-GLANDPHARMA-CH-2024GLNLIT00915

PATIENT
  Age: 31 Year
  Sex: Female

DRUGS (17)
  1. LACOSAMIDE [Suspect]
     Active Substance: LACOSAMIDE
     Indication: Status epilepticus
     Route: 065
  2. BRIVARACETAM [Suspect]
     Active Substance: BRIVARACETAM
     Indication: Status epilepticus
     Route: 065
  3. PHENOBARBITAL [Suspect]
     Active Substance: PHENOBARBITAL
     Indication: Status epilepticus
     Route: 065
  4. PREGABALIN [Suspect]
     Active Substance: PREGABALIN
     Indication: Status epilepticus
     Route: 065
  5. PERAMPANEL [Suspect]
     Active Substance: PERAMPANEL
     Indication: Status epilepticus
     Route: 065
  6. CLONAZEPAM [Suspect]
     Active Substance: CLONAZEPAM
     Indication: Status epilepticus
     Route: 065
  7. KETAMINE [Suspect]
     Active Substance: KETAMINE
     Indication: Status epilepticus
     Route: 065
  8. PROPOFOL [Suspect]
     Active Substance: PROPOFOL
     Indication: Status epilepticus
     Route: 065
  9. THIOPENTAL [Suspect]
     Active Substance: THIOPENTAL
     Indication: Status epilepticus
     Route: 065
  10. SEVOFLURANE [Suspect]
     Active Substance: SEVOFLURANE
     Indication: Status epilepticus
  11. LEVETIRACETAM [Concomitant]
     Active Substance: LEVETIRACETAM
     Route: 042
  12. LEVETIRACETAM [Concomitant]
     Active Substance: LEVETIRACETAM
     Route: 042
  13. LEVETIRACETAM [Concomitant]
     Active Substance: LEVETIRACETAM
     Route: 065
  14. VALPROATE SODIUM [Concomitant]
     Active Substance: VALPROATE SODIUM
     Route: 042
  15. MIDAZOLAM [Concomitant]
     Active Substance: MIDAZOLAM
     Route: 065
  16. MIDAZOLAM [Concomitant]
     Active Substance: MIDAZOLAM
     Dosage: UP TO 5 MG/H
     Route: 065
  17. MIDAZOLAM [Concomitant]
     Active Substance: MIDAZOLAM
     Dosage: UP TO 20 MG/H
     Route: 065

REACTIONS (3)
  - Status epilepticus [Recovered/Resolved]
  - Rebound effect [Unknown]
  - Drug ineffective for unapproved indication [Unknown]
